FAERS Safety Report 8376284-4 (Version None)
Quarter: 2012Q1

REPORT INFORMATION
  Report Type: 
  Country: None (occurrence: None)
  Receive Date: 20120323
  Receipt Date: 20110525
  Transmission Date: 20120608
  Serious: Yes (Other)
  Sender: FDA-Public Use
  Company Number: 163-21880-11053495

PATIENT
  Age: 74 Year
  Sex: Male
  Weight: 66.2252 kg

DRUGS (19)
  1. REVLIMID [Suspect]
     Indication: MULTIPLE MYELOMA
     Dosage: 10 MG, 1 IN 1 D, PO
     Route: 048
     Dates: start: 20100203, end: 20100224
  2. VITAMIN B12 [Concomitant]
  3. DILAUDID [Concomitant]
  4. ANDRODERM [Concomitant]
  5. MELPHALAN HYDROCHLORIDE [Concomitant]
  6. METHADONE HCL [Concomitant]
  7. NORTRIPTYLINE HCL [Concomitant]
  8. FLUOXETINE [Concomitant]
  9. FUROSEMIDE [Concomitant]
  10. OXYBUTYNIN [Concomitant]
  11. ZOFRAN [Concomitant]
  12. PRAVASTATIN [Concomitant]
  13. TIZANIDINE HCL [Concomitant]
  14. PREDNISONE TAB [Concomitant]
  15. PROCRIT [Concomitant]
  16. FOLIC ACID [Concomitant]
  17. FLOMAX [Concomitant]
  18. SOTALOL HCL [Concomitant]
  19. ASPIRIN [Concomitant]

REACTIONS (7)
  - WHITE BLOOD CELL COUNT DECREASED [None]
  - NEUTROPHIL COUNT DECREASED [None]
  - PLATELET COUNT DECREASED [None]
  - HYPERSOMNIA [None]
  - ASTHENIA [None]
  - FATIGUE [None]
  - DEHYDRATION [None]
